FAERS Safety Report 17109924 (Version 1)
Quarter: 2019Q4

REPORT INFORMATION
  Report Type: Other
  Country: CA (occurrence: CA)
  Receive Date: 20191204
  Receipt Date: 20191204
  Transmission Date: 20200122
  Serious: Yes (Other)
  Sender: FDA-Public Use
  Company Number: CA-APOTEX-2019AP025499

PATIENT
  Age: 34 Year
  Sex: Male
  Weight: 83.9 kg

DRUGS (2)
  1. QUETIAPINE. [Suspect]
     Active Substance: QUETIAPINE
     Dosage: UNK
     Route: 065
  2. QUETIAPINE. [Suspect]
     Active Substance: QUETIAPINE
     Indication: SLEEP DISORDER
     Dosage: 75 MG, TID
     Route: 048

REACTIONS (8)
  - Head discomfort [Unknown]
  - Musculoskeletal stiffness [Unknown]
  - Hyperhidrosis [Unknown]
  - Movement disorder [Unknown]
  - Malaise [Unknown]
  - Depression [Unknown]
  - Insomnia [Unknown]
  - Dyskinesia [Unknown]
